FAERS Safety Report 9805492 (Version 1)
Quarter: 2014Q1

REPORT INFORMATION
  Report Type: Spontaneous
  Country: US (occurrence: None)
  Receive Date: 20140108
  Receipt Date: 20140108
  Transmission Date: 20141002
  Serious: Yes (Hospitalization)
  Sender: FDA-Public Use
  Company Number: None

PATIENT
  Age: 5 Year
  Sex: Male

DRUGS (2)
  1. CYTARABINE [Suspect]
  2. MITOXANTRONE HYDROCHLORIDE [Suspect]
     Dates: end: 20131208

REACTIONS (21)
  - Pyrexia [None]
  - Neutropenia [None]
  - Streptococcus test positive [None]
  - Hypotension [None]
  - Sepsis [None]
  - Cardiac disorder [None]
  - Pulmonary hypertension [None]
  - Respiratory failure [None]
  - Pneumocystis jirovecii pneumonia [None]
  - Rash maculo-papular [None]
  - Labile blood pressure [None]
  - General physical health deterioration [None]
  - Renal impairment [None]
  - Blood urea increased [None]
  - Blood creatinine increased [None]
  - Hyperkalaemia [None]
  - Coagulopathy [None]
  - Hepatic function abnormal [None]
  - Ventricular tachycardia [None]
  - Cardiac arrest [None]
  - Aspergillus test positive [None]
